FAERS Safety Report 22294117 (Version 3)
Quarter: 2023Q4

REPORT INFORMATION
  Report Type: Spontaneous
  Country: US (occurrence: US)
  Receive Date: 20230508
  Receipt Date: 20231004
  Transmission Date: 20240109
  Serious: No
  Sender: FDA-Public Use
  Company Number: US-Eisai Medical Research-EC-2023-138260

PATIENT
  Age: 67 Year
  Sex: Male
  Weight: 70.3 kg

DRUGS (9)
  1. LEQEMBI [Suspect]
     Active Substance: LECANEMAB-IRMB
     Indication: Dementia Alzheimer^s type
     Dosage: DOSE AND FREQUENCY UNKNOWN
     Route: 042
     Dates: start: 20230405, end: 202305
  2. LEQEMBI [Suspect]
     Active Substance: LECANEMAB-IRMB
     Dosage: DOSE AND FREQUENCY UNKNOWN (FIFTH INFUSION)
     Route: 042
     Dates: start: 20230531, end: 20230531
  3. LEQEMBI [Suspect]
     Active Substance: LECANEMAB-IRMB
     Dosage: DOSE AND FREQUENCY UNKNOWN (6TH INFUSION)
     Route: 042
     Dates: start: 2023
  4. CRESTOR [Concomitant]
     Active Substance: ROSUVASTATIN CALCIUM
  5. NEURONTIN [Concomitant]
     Active Substance: GABAPENTIN
  6. NADOLOL [Concomitant]
     Active Substance: NADOLOL
  7. CLONAZEPAM [Concomitant]
     Active Substance: CLONAZEPAM
  8. TRAMADOL [Concomitant]
     Active Substance: TRAMADOL\TRAMADOL HYDROCHLORIDE
  9. EZETIMIBE [Concomitant]
     Active Substance: EZETIMIBE

REACTIONS (1)
  - Amyloid related imaging abnormality-oedema/effusion [Recovering/Resolving]

NARRATIVE: CASE EVENT DATE: 20230621
